FAERS Safety Report 9500463 (Version 2)
Quarter: 2013Q3

REPORT INFORMATION
  Report Type: Spontaneous
  Country: US (occurrence: US)
  Receive Date: 20130905
  Receipt Date: 20130905
  Transmission Date: 20140515
  Serious: Yes (Hospitalization, Other)
  Sender: FDA-Public Use
  Company Number: US-009507513-1109USA01504

PATIENT
  Sex: Female
  Weight: 58.97 kg

DRUGS (5)
  1. FOSAMAX [Suspect]
     Indication: OSTEOPENIA
     Dosage: 70 MG, QW
     Route: 048
     Dates: start: 1995
  2. FOSAMAX [Suspect]
     Indication: OSTEOPOROSIS
  3. ALENDRONATE SODIUM [Suspect]
     Dosage: 70 MG, QW
     Route: 048
  4. ZETIA [Concomitant]
     Indication: HYPERCHOLESTEROLAEMIA
  5. MK-0966 [Concomitant]
     Indication: OSTEOARTHRITIS

REACTIONS (37)
  - Femur fracture [Unknown]
  - Fall [Unknown]
  - Basal cell carcinoma [Unknown]
  - Spinal compression fracture [Unknown]
  - Anaemia postoperative [Unknown]
  - Haemorrhage [Unknown]
  - Haemorrhagic anaemia [Unknown]
  - Osteoarthritis [Unknown]
  - Osteonecrosis [Unknown]
  - Asthma [Unknown]
  - Balance disorder [Unknown]
  - Fall [Unknown]
  - Intervertebral disc protrusion [Unknown]
  - Androgenetic alopecia [Unknown]
  - Nail disorder [Unknown]
  - Low turnover osteopathy [Unknown]
  - Dry eye [Unknown]
  - Hyperglycaemia [Unknown]
  - Carotid bruit [Unknown]
  - Meniscus injury [Unknown]
  - Neuropathy peripheral [Unknown]
  - Insomnia [Unknown]
  - Arthritis [Unknown]
  - Chest pain [Unknown]
  - Tendonitis [Unknown]
  - Osteoarthritis [Unknown]
  - Herpes zoster [Unknown]
  - Cough [Unknown]
  - Urinary tract infection [Unknown]
  - Lung disorder [Unknown]
  - Rib fracture [Recovered/Resolved]
  - Drug ineffective [Unknown]
  - Nausea [Unknown]
  - Vomiting [Unknown]
  - Gastrooesophageal reflux disease [Unknown]
  - Pain in extremity [Unknown]
  - Arthralgia [Unknown]
